FAERS Safety Report 5634615-X (Version None)
Quarter: 2008Q1

REPORT INFORMATION
  Report Type: 
  Country: None (occurrence: None)
  Receive Date: 20080222
  Receipt Date: 20080212
  Transmission Date: 20080703
  Serious: Yes (Hospitalization, Other)
  Sender: FDA-Public Use
  Company Number: US-AMGEN-US261501

PATIENT
  Sex: Female

DRUGS (2)
  1. ENBREL [Suspect]
     Indication: RHEUMATOID ARTHRITIS
     Route: 058
     Dates: start: 20050201
  2. PLAQUENIL [Concomitant]
     Route: 048
     Dates: start: 19970101

REACTIONS (4)
  - ARTHRALGIA [None]
  - ARTHRITIS [None]
  - PAIN [None]
  - PAIN IN EXTREMITY [None]
